FAERS Safety Report 6019937-5 (Version None)
Quarter: 2008Q4

REPORT INFORMATION
  Report Type: 
  Country: None (occurrence: None)
  Receive Date: 20081223
  Receipt Date: 20081212
  Transmission Date: 20090506
  Serious: Yes (Hospitalization)
  Sender: FDA-Public Use
  Company Number: 234233J08USA

PATIENT
  Age: 50 Year
  Sex: Female
  Weight: 82 kg

DRUGS (6)
  1. REBIF [Suspect]
     Indication: MULTIPLE SCLEROSIS
     Dosage: 3 IN 1 WEEKS, SUBCUTANEOUS; 22 MCG, 3 IN 1 WEEKS, SUBCUTANEOUS
     Route: 058
     Dates: start: 20080417, end: 20080101
  2. REBIF [Suspect]
     Indication: MULTIPLE SCLEROSIS
     Dosage: 3 IN 1 WEEKS, SUBCUTANEOUS; 22 MCG, 3 IN 1 WEEKS, SUBCUTANEOUS
     Route: 058
     Dates: start: 20080101, end: 20080506
  3. CELEXA [Concomitant]
  4. CYMBALTA [Concomitant]
  5. PERCOCET [Concomitant]
  6. LYRICA [Concomitant]

REACTIONS (11)
  - BACTERIAL INFECTION [None]
  - BLOOD TRIGLYCERIDES INCREASED [None]
  - CONFUSIONAL STATE [None]
  - DIABETES MELLITUS [None]
  - HYPERSENSITIVITY [None]
  - INFLUENZA LIKE ILLNESS [None]
  - ORAL INFECTION [None]
  - THIRST [None]
  - VAGINAL INFECTION [None]
  - VOMITING [None]
  - WEIGHT DECREASED [None]
